FAERS Safety Report 23067278 (Version 1)
Quarter: 2023Q4

REPORT INFORMATION
  Report Type: Spontaneous
  Country: US (occurrence: US)
  Receive Date: 20231016
  Receipt Date: 20231016
  Transmission Date: 20240110
  Serious: Yes (Other)
  Sender: FDA-Public Use
  Company Number: US-HIKMA PHARMACEUTICALS USA INC.-US-H14001-22-02395

PATIENT
  Age: 37 Year
  Sex: Male

DRUGS (2)
  1. OXYMORPHONE [Suspect]
     Active Substance: OXYMORPHONE
     Indication: Pain
     Dosage: UNKNOWN
     Route: 065
  2. OXYCONTIN [Suspect]
     Active Substance: OXYCODONE HYDROCHLORIDE
     Indication: Pain
     Dosage: UNKNOWN
     Route: 065

REACTIONS (1)
  - Drug abuse [Unknown]
